FAERS Safety Report 5258755-2 (Version None)
Quarter: 2007Q1

REPORT INFORMATION
  Report Type: 
  Country: None (occurrence: None)
  Receive Date: 20070306
  Receipt Date: 20070306
  Transmission Date: 20070707
  Serious: Yes (Hospitalization)
  Sender: FDA-Public Use
  Company Number: None

PATIENT
  Sex: Male
  Weight: 108 kg

DRUGS (1)
  1. DILTIAZEM HCL [Suspect]
     Indication: HYPERTENSION
     Dosage: 240MG DAILY PO
     Route: 048

REACTIONS (4)
  - FLUSHING [None]
  - HEADACHE [None]
  - HEART RATE DECREASED [None]
  - VENTRICULAR EXTRASYSTOLES [None]
